FAERS Safety Report 13404611 (Version 1)
Quarter: 2017Q2

REPORT INFORMATION
  Report Type: Spontaneous
  Country: IT (occurrence: IT)
  Receive Date: 20170405
  Receipt Date: 20170405
  Transmission Date: 20170830
  Serious: Yes (Hospitalization)
  Sender: FDA-Public Use
  Company Number: US-ASTRAZENECA-2017SE34700

PATIENT
  Age: 415 Day
  Sex: Male
  Weight: 9 kg

DRUGS (1)
  1. SYNAGIS [Suspect]
     Active Substance: PALIVIZUMAB
     Indication: ANTIVIRAL PROPHYLAXIS
     Dosage: (1ML-100 MG) AND (HALF VIAL, 0.5ML- 50MG) TOGATHER MONTHLY
     Route: 030
     Dates: start: 201611, end: 20170221

REACTIONS (3)
  - Respiratory syncytial virus bronchitis [Recovered/Resolved]
  - Pneumovirus test positive [Recovered/Resolved]
  - Drug ineffective [Recovered/Resolved]

NARRATIVE: CASE EVENT DATE: 20170304
